FAERS Safety Report 5285005-3 (Version None)
Quarter: 2007Q1

REPORT INFORMATION
  Report Type: 
  Country: None (occurrence: None)
  Receive Date: 20070328
  Receipt Date: 20070319
  Transmission Date: 20070707
  Serious: Yes (Other)
  Sender: FDA-Public Use
  Company Number: 2007SP005222

PATIENT
  Age: 28 Year
  Sex: Female

DRUGS (6)
  1. BETAMETHASONE SODIUM PHOSPHATE [Suspect]
     Indication: DRUG USE FOR UNKNOWN INDICATION
  2. PREDONINE [Concomitant]
  3. PREDNISOLONE [Concomitant]
  4. GASTER D [Concomitant]
  5. MYDRIN P [Concomitant]
  6. ATROPINE [Concomitant]

REACTIONS (3)
  - DRUG EXPOSURE DURING PREGNANCY [None]
  - INTRA-UTERINE DEATH [None]
  - STILLBIRTH [None]
